FAERS Safety Report 26198743 (Version 1)
Quarter: 2025Q4

REPORT INFORMATION
  Report Type: Spontaneous
  Country: US (occurrence: US)
  Receive Date: 20251225
  Receipt Date: 20251225
  Transmission Date: 20260118
  Serious: No
  Sender: ACCORD
  Company Number: US-Accord-507857

PATIENT
  Age: 50 Year
  Sex: Female

DRUGS (2)
  1. ROSUVASTATIN CALCIUM [Suspect]
     Active Substance: ROSUVASTATIN CALCIUM
     Indication: Product used for unknown indication
  2. VOCLOSPORIN [Suspect]
     Active Substance: VOCLOSPORIN
     Indication: Systemic lupus erythematosus
     Dosage: STRENGTH: 7.9 MG?BID, SOFT GEL CAPSULE
     Route: 048
     Dates: start: 20250827

REACTIONS (1)
  - Blood cholesterol increased [Unknown]
